FAERS Safety Report 6934570-6 (Version None)
Quarter: 2010Q3

REPORT INFORMATION
  Report Type: 
  Country: None (occurrence: None)
  Receive Date: 20100820
  Receipt Date: 20100812
  Transmission Date: 20110219
  Serious: Yes (Hospitalization)
  Sender: FDA-Public Use
  Company Number: US-US-EMD SERONO, INC.-7007380

PATIENT
  Sex: Female
  Weight: 59 kg

DRUGS (3)
  1. REBIF [Suspect]
     Indication: MULTIPLE SCLEROSIS
     Dates: end: 20100401
  2. REBIF [Suspect]
     Route: 058
     Dates: start: 20100519, end: 20100501
  3. REBIF [Suspect]
     Dates: start: 20100621

REACTIONS (6)
  - ALOPECIA [None]
  - CHILLS [None]
  - HEADACHE [None]
  - MULTIPLE SCLEROSIS RELAPSE [None]
  - PYREXIA [None]
  - VITAMIN D DECREASED [None]
